FAERS Safety Report 7235940-1 (Version None)
Quarter: 2011Q1

REPORT INFORMATION
  Report Type: 
  Country: None (occurrence: None)
  Receive Date: 20110120
  Receipt Date: 20110112
  Transmission Date: 20110831
  Serious: Yes (Hospitalization)
  Sender: FDA-Public Use
  Company Number: A0867495A

PATIENT
  Sex: Female

DRUGS (13)
  1. METOPROLOL [Concomitant]
     Dosage: 25MG TWICE PER DAY
     Route: 065
  2. SPIRONOLACTONE [Concomitant]
     Dosage: 25MG TWICE PER DAY
     Route: 065
  3. XELODA [Suspect]
     Dosage: 1000MG TWICE PER DAY
     Route: 065
  4. PANTOPRAZOLE [Concomitant]
     Dosage: 40MG PER DAY
     Route: 065
  5. VITAMIN D [Concomitant]
     Dosage: 1000MG PER DAY
     Route: 065
  6. DEXAMETHASONE [Concomitant]
     Dosage: 1MG TWICE PER DAY
     Route: 065
  7. LAXATIVE [Concomitant]
  8. DESMOPRESSIN ACETATE [Concomitant]
     Route: 065
  9. METOCLOPRAMIDE [Concomitant]
     Dosage: 10MG UNKNOWN
     Route: 065
  10. ASA [Concomitant]
     Dosage: 81MG PER DAY
     Route: 065
  11. TYKERB [Suspect]
     Dosage: 1250MG PER DAY
     Route: 048
     Dates: start: 20100615
  12. HYDROMORPHONE [Concomitant]
     Dosage: 24MG TWICE PER DAY
     Route: 065
  13. SLOW-K [Concomitant]
     Route: 065

REACTIONS (9)
  - ORAL PAIN [None]
  - DIARRHOEA [None]
  - STOMATITIS [None]
  - BLOOD POTASSIUM DECREASED [None]
  - SKIN ULCER [None]
  - BLOOD SODIUM DECREASED [None]
  - RENAL FAILURE [None]
  - DEHYDRATION [None]
  - ASTHENIA [None]
